FAERS Safety Report 9858664 (Version 1)
Quarter: 2014Q1

REPORT INFORMATION
  Report Type: Spontaneous
  Country: US (occurrence: US)
  Receive Date: 20140131
  Receipt Date: 20140131
  Transmission Date: 20141002
  Serious: No
  Sender: FDA-Public Use
  Company Number: US-BAYER-2014-016229

PATIENT
  Age: 79 Year
  Sex: Female
  Weight: 79.37 kg

DRUGS (3)
  1. ALEVE CAPLET [Suspect]
     Indication: ANALGESIC THERAPY
     Dosage: 1 DF, BID
     Route: 048
     Dates: start: 201311
  2. ALEVE CAPLET [Suspect]
     Indication: ANALGESIC THERAPY
     Dosage: 4 DF, UNK
     Dates: start: 2013, end: 2013
  3. ENALAPRIL MALEATE [Concomitant]

REACTIONS (3)
  - Incorrect drug administration duration [None]
  - Expired drug administered [None]
  - Extra dose administered [None]
